FAERS Safety Report 8764824 (Version 2)
Quarter: 2012Q4

REPORT INFORMATION
  Report Type: Report from Study
  Country: US (occurrence: US)
  Receive Date: 20120831
  Receipt Date: 20121016
  Transmission Date: 20130627
  Serious: Yes (Hospitalization)
  Sender: FDA-Public Use
  Company Number: US-ROCHE-1061250

PATIENT
  Age: 71 Year
  Sex: Male
  Weight: 66.5 kg

DRUGS (6)
  1. TRASTUZUMAB [Suspect]
     Indication: OESOPHAGEAL ADENOCARCINOMA
     Dosage: maintainance therapy:over 30 to 90 min on day 1
     Route: 042
     Dates: start: 20111018
  2. TRASTUZUMAB [Suspect]
     Dosage: over 30 to 60 min on days 8, 15, 22, 29 and 36
     Route: 042
  3. TRASTUZUMAB [Suspect]
     Dosage: over 30 to 90 min on day 57
     Route: 042
  4. TRASTUZUMAB [Suspect]
     Dosage: maintainance therapy: over 30 to 90 min on day 1
     Route: 042
  5. PACLITAXEL [Suspect]
     Indication: OESOPHAGEAL ADENOCARCINOMA
     Dosage: over 1 hr on days 1, 8, 15, 22, 29 and 36
     Route: 042
     Dates: start: 20111018
  6. CARBOPLATIN [Suspect]
     Indication: OESOPHAGEAL ADENOCARCINOMA
     Dosage: AUC=2 over 1 hr on days 1, 8, 15, 22, 29 and 36
     Route: 042
     Dates: start: 20111018

REACTIONS (3)
  - Dehydration [Recovered/Resolved]
  - Diarrhoea [Recovered/Resolved]
  - Nausea [Recovered/Resolved]
